FAERS Safety Report 7124658-1 (Version None)
Quarter: 2010Q4

REPORT INFORMATION
  Report Type: 
  Country: None (occurrence: None)
  Receive Date: 20101122
  Receipt Date: 20101122
  Transmission Date: 20110411
  Serious: Yes (Life-Threatening)
  Sender: FDA-Public Use
  Company Number: None

PATIENT
  Age: 30 Year
  Sex: Female
  Weight: 94.3482 kg

DRUGS (1)
  1. LITHIUM CARBONATE [Suspect]
     Indication: BIPOLAR DISORDER
     Dosage: 1800MG DAILY PO
     Route: 048
     Dates: start: 20091101, end: 20100501

REACTIONS (19)
  - AMNESIA [None]
  - ARTHRALGIA [None]
  - BODY TEMPERATURE DECREASED [None]
  - BOWEL MOVEMENT IRREGULARITY [None]
  - COGNITIVE DISORDER [None]
  - COORDINATION ABNORMAL [None]
  - DEPRESSION [None]
  - DYSPHONIA [None]
  - FATIGUE [None]
  - FEELING COLD [None]
  - HAIR GROWTH ABNORMAL [None]
  - INSOMNIA [None]
  - JOINT CREPITATION [None]
  - MOTION SICKNESS [None]
  - NAIL GROWTH ABNORMAL [None]
  - NAUSEA [None]
  - PERIPHERAL COLDNESS [None]
  - URINARY INCONTINENCE [None]
  - WEIGHT INCREASED [None]
